FAERS Safety Report 21719342 (Version 1)
Quarter: 2022Q4

REPORT INFORMATION
  Report Type: Other
  Country: CN (occurrence: None)
  Receive Date: 20221213
  Receipt Date: 20221213
  Transmission Date: 20230112
  Serious: Yes (Other)
  Sender: FDA-Public Use
  Company Number: CN-ROCHE-3233513

PATIENT

DRUGS (2)
  1. CAPECITABINE [Suspect]
     Active Substance: CAPECITABINE
     Indication: Colon cancer
     Dosage: 12 CYCLES BIWEEKLY 10 DAYS OR 8 CYCLES TRIWEEKLY 14 CONSECUTIVE DAYS, WHICH WAS REPEATED EVERY 3 WEE
     Route: 065
  2. OXALIPLATIN [Suspect]
     Active Substance: OXALIPLATIN
     Indication: Colon cancer
     Dosage: 12 CYCLES BIWEEKLY 2-HOUR INFUSION OF OXALIPLATIN (85 MG/M2) ON DAY 1 OR 8 CYCLES TRIWEEKLY 2-HOUR I
     Route: 042

REACTIONS (5)
  - Splenomegaly [Unknown]
  - Thrombocytopenia [Unknown]
  - Red blood cell count decreased [Unknown]
  - Lymphocyte count decreased [Unknown]
  - Neutrophil count decreased [Unknown]
